FAERS Safety Report 5098902-9 (Version None)
Quarter: 2006Q3

REPORT INFORMATION
  Report Type: 
  Country: None (occurrence: None)
  Receive Date: 20060907
  Receipt Date: 20060817
  Transmission Date: 20061208
  Serious: Yes (Hospitalization)
  Sender: FDA-Public Use
  Company Number: PHBS2006JP12519

PATIENT
  Age: 72 Year

DRUGS (1)
  1. VOLTAREN [Suspect]
     Dosage: 100 MG/DAY
     Route: 054

REACTIONS (1)
  - ILEUS [None]
